FAERS Safety Report 25292887 (Version 2)
Quarter: 2025Q3

REPORT INFORMATION
  Report Type: Report from Study
  Country: CA (occurrence: CA)
  Receive Date: 20250510
  Receipt Date: 20250917
  Transmission Date: 20251020
  Serious: Yes (Death, Hospitalization)
  Sender: ABBVIE
  Company Number: CA-ABBVIE-6269378

PATIENT
  Age: 71 Year
  Sex: Male
  Weight: 73.9 kg

DRUGS (16)
  1. RISANKIZUMAB [Suspect]
     Active Substance: RISANKIZUMAB
     Indication: Crohn^s disease
     Route: 058
     Dates: start: 20231120
  2. RISANKIZUMAB [Suspect]
     Active Substance: RISANKIZUMAB
     Indication: Crohn^s disease
     Route: 042
     Dates: start: 20230817, end: 20231013
  3. DIGOXIN [Concomitant]
     Active Substance: DIGOXIN
     Indication: Atrial fibrillation
     Route: 048
     Dates: start: 202210
  4. EDOXABAN TOSYLATE [Concomitant]
     Active Substance: EDOXABAN TOSYLATE
     Indication: Atrial fibrillation
     Route: 048
     Dates: start: 20230726, end: 20250403
  5. METOPROLOL [Concomitant]
     Active Substance: METOPROLOL
     Indication: Atrial fibrillation
     Route: 048
     Dates: start: 202210, end: 20250403
  6. METFORMIN HYDROCHLORIDE [Concomitant]
     Active Substance: METFORMIN HYDROCHLORIDE
     Indication: Diabetes mellitus
     Route: 048
     Dates: start: 20221125, end: 20250403
  7. PANTOPRAZOLE [Concomitant]
     Active Substance: PANTOPRAZOLE
     Indication: Gastrooesophageal reflux disease
     Route: 048
     Dates: start: 202306, end: 20250403
  8. IRON [Concomitant]
     Active Substance: IRON
     Indication: Iron deficiency
     Route: 042
     Dates: start: 20231115, end: 20250403
  9. ONDANSETRON [Concomitant]
     Active Substance: ONDANSETRON
     Indication: Non-small cell lung cancer
     Route: 048
     Dates: start: 20231212, end: 20250403
  10. DEXAMETHASONE [Concomitant]
     Active Substance: DEXAMETHASONE
     Indication: Non-small cell lung cancer
     Route: 048
     Dates: start: 20231212, end: 20250403
  11. FOLIC ACID [Concomitant]
     Active Substance: FOLIC ACID
     Indication: Non-small cell lung cancer
     Route: 048
     Dates: start: 20231212, end: 20250403
  12. VITAMIN B12 [Concomitant]
     Active Substance: CYANOCOBALAMIN
     Indication: Non-small cell lung cancer
     Route: 030
     Dates: start: 20231218, end: 20250403
  13. PEMETREXED [Concomitant]
     Active Substance: PEMETREXED
     Indication: Non-small cell lung cancer
     Route: 042
     Dates: start: 20231219, end: 20250403
  14. TYLENOL [Concomitant]
     Active Substance: ACETAMINOPHEN
     Indication: Adverse drug reaction
     Route: 048
     Dates: start: 20240918, end: 20250403
  15. FERAMAX [Concomitant]
     Active Substance: IRON\POLYSACCHARIDES
     Indication: Iron deficiency
     Route: 048
     Dates: start: 202306, end: 20250403
  16. SODIUM CHLORIDE [Concomitant]
     Active Substance: SODIUM CHLORIDE
     Indication: Influenza
     Route: 050
     Dates: start: 20250325, end: 20250403

REACTIONS (2)
  - Influenza [Fatal]
  - Dyspnoea [Recovered/Resolved]

NARRATIVE: CASE EVENT DATE: 20250311
